FAERS Safety Report 14139817 (Version 1)
Quarter: 2017Q4

REPORT INFORMATION
  Report Type: Spontaneous
  Country: US (occurrence: US)
  Receive Date: 20171030
  Receipt Date: 20171030
  Transmission Date: 20180321
  Serious: Yes (Other)
  Sender: FDA-Public Use
  Company Number: US-STRIDES ARCOLAB LIMITED-2017SP013638

PATIENT

DRUGS (5)
  1. VANCOMYCIN [Suspect]
     Active Substance: VANCOMYCIN
     Indication: MENINGITIS STAPHYLOCOCCAL
     Dosage: UNK
     Route: 042
  2. CEFTRIAXONE. [Suspect]
     Active Substance: CEFTRIAXONE
     Indication: MENINGITIS STAPHYLOCOCCAL
     Dosage: UNK
     Route: 065
  3. CEFEPIME [Suspect]
     Active Substance: CEFEPIME HYDROCHLORIDE
     Indication: MENINGITIS STAPHYLOCOCCAL
     Dosage: UNK
     Route: 065
  4. HYDROCORTISONE. [Suspect]
     Active Substance: HYDROCORTISONE
     Indication: ADRENOCORTICAL STEROID THERAPY
     Dosage: 20 MG/DAY, BID
     Route: 065
  5. HYDROCORTISONE. [Suspect]
     Active Substance: HYDROCORTISONE
     Dosage: 20 MG/DAY
     Route: 065

REACTIONS (4)
  - Headache [Recovered/Resolved]
  - Meningitis candida [Unknown]
  - Cerebrospinal fluid leakage [Recovered/Resolved]
  - Pneumocephalus [Unknown]
